FAERS Safety Report 15091576 (Version 1)
Quarter: 2018Q2

REPORT INFORMATION
  Report Type: Spontaneous
  Country: US (occurrence: US)
  Receive Date: 20180629
  Receipt Date: 20180629
  Transmission Date: 20180711
  Serious: No
  Sender: FDA-Public Use
  Company Number: US-AMGEN-USASP2016166160

PATIENT
  Age: 57 Year
  Sex: Female
  Weight: 68.27 kg

DRUGS (13)
  1. PROGESTERONE. [Concomitant]
     Active Substance: PROGESTERONE
     Dosage: 4 %, UNK
     Route: 067
  2. TESTOSTERONE. [Concomitant]
     Active Substance: TESTOSTERONE
     Dosage: 1.25 G (1%), UNK
     Route: 062
  3. CENTRUM SILVER [Concomitant]
     Active Substance: MINERALS\VITAMINS
     Dosage: UNK
     Route: 048
  4. MULTIVITAMIN [Concomitant]
     Active Substance: VITAMINS
  5. CALCIUM CARBONATE. [Concomitant]
     Active Substance: CALCIUM CARBONATE
     Dosage: 1250 MG, UNK
     Route: 048
  6. CYMBALTA [Concomitant]
     Active Substance: DULOXETINE HYDROCHLORIDE
     Indication: FIBROMYALGIA
     Dosage: 60 MG, QD
     Route: 048
  7. VITAMIN D3 [Concomitant]
     Active Substance: CHOLECALCIFEROL
     Dosage: 1000 UNIT, QD
     Route: 048
  8. ESTROGEN [Concomitant]
     Active Substance: ESTROGENS
     Dosage: 0.1 MG/G, QD
     Route: 067
  9. PROLIA [Suspect]
     Active Substance: DENOSUMAB
     Indication: OSTEOPOROSIS
     Dosage: 60 MG/ML, Q6MO
     Route: 058
     Dates: start: 20160329, end: 20160922
  10. MAGNESIUM OXIDE. [Concomitant]
     Active Substance: MAGNESIUM OXIDE
     Dosage: 500 MG, BID
  11. CALCIUM [Concomitant]
     Active Substance: CALCIUM
  12. MAGNESIUM [Concomitant]
     Active Substance: MAGNESIUM
  13. LYSINE [Concomitant]
     Active Substance: LYSINE
     Dosage: UNK UNK, QD
     Route: 048

REACTIONS (10)
  - Cough [Unknown]
  - Fibromyalgia [Unknown]
  - Urticaria [Not Recovered/Not Resolved]
  - Rash pruritic [Unknown]
  - Ephelides [Unknown]
  - Neck pain [Not Recovered/Not Resolved]
  - Skin haemorrhage [Unknown]
  - Bullous impetigo [Not Recovered/Not Resolved]
  - Dermatitis contact [Not Recovered/Not Resolved]
  - Acne [Unknown]

NARRATIVE: CASE EVENT DATE: 2016
